FAERS Safety Report 6151035-2 (Version None)
Quarter: 2009Q2

REPORT INFORMATION
  Report Type: 
  Country: None (occurrence: None)
  Receive Date: 20090410
  Receipt Date: 20090309
  Transmission Date: 20091009
  Serious: No
  Sender: FDA-Public Use
  Company Number: A0772094A

PATIENT
  Age: 56 Year
  Sex: Female

DRUGS (7)
  1. TYKERB [Suspect]
     Indication: BREAST CANCER
     Dosage: 750MG THREE TIMES PER DAY
     Route: 048
     Dates: start: 20090227
  2. XELODA [Concomitant]
  3. ALTACE [Concomitant]
  4. COUMADIN [Concomitant]
  5. BONIVA [Concomitant]
  6. CALTRATE [Concomitant]
  7. ZANTAC [Concomitant]

REACTIONS (4)
  - DYSPEPSIA [None]
  - FATIGUE [None]
  - NAUSEA [None]
  - SOMNOLENCE [None]
